FAERS Safety Report 11897078 (Version 1)
Quarter: 2016Q1

REPORT INFORMATION
  Report Type: Report from Study
  Country: FR (occurrence: FR)
  Receive Date: 20160107
  Receipt Date: 20160107
  Transmission Date: 20160526
  Serious: Yes (Hospitalization, Disabling, Other)
  Sender: FDA-Public Use
  Company Number: FR-GILEAD-2005-0008098

PATIENT
  Age: 3 Month
  Sex: Female
  Weight: 3.8 kg

DRUGS (5)
  1. TENOFOVIR DISOPROXIL FUMARATE. [Suspect]
     Active Substance: TENOFOVIR DISOPROXIL FUMARATE
     Indication: HIV INFECTION
     Dosage: UNK
     Route: 064
     Dates: start: 20030915, end: 20041031
  2. EPIVIR [Suspect]
     Active Substance: LAMIVUDINE
     Indication: HIV INFECTION
     Dosage: UNK
     Route: 064
     Dates: start: 20030915, end: 20041031
  3. NORVIR [Suspect]
     Active Substance: RITONAVIR
     Indication: HIV INFECTION
     Dosage: UNK
     Route: 064
     Dates: start: 20030915, end: 20041031
  4. AGENERASE [Suspect]
     Active Substance: AMPRENAVIR
     Indication: HIV INFECTION
     Route: 064
  5. RETROVIR [Suspect]
     Active Substance: ZIDOVUDINE
     Indication: PRODUCT USED FOR UNKNOWN INDICATION
     Dosage: 2 MG/KG, BID
     Route: 042
     Dates: start: 20041031, end: 20041231

REACTIONS (6)
  - Eye disorder [Unknown]
  - Hypotonia [Recovering/Resolving]
  - Nystagmus [Recovering/Resolving]
  - Prognathism [Recovering/Resolving]
  - Dyskinesia [Unknown]
  - Eye movement disorder [Unknown]

NARRATIVE: CASE EVENT DATE: 20050202
